FAERS Safety Report 6968228-4 (Version None)
Quarter: 2010Q3

REPORT INFORMATION
  Report Type: 
  Country: None (occurrence: None)
  Receive Date: 20100907
  Receipt Date: 20100902
  Transmission Date: 20110219
  Serious: Yes (Death, Hospitalization)
  Sender: FDA-Public Use
  Company Number: FR-ROCHE-707512

PATIENT
  Sex: Female

DRUGS (2)
  1. AVASTIN [Suspect]
     Dosage: FREQUENCY: PER CYCLE
     Route: 042
     Dates: start: 20090804, end: 20100118
  2. TAXOL [Suspect]
     Dosage: FREQUENCY: PER CYCLE
     Route: 042
     Dates: start: 20090721, end: 20100105

REACTIONS (1)
  - HEPATIC CIRRHOSIS [None]
